FAERS Safety Report 5239970-0 (Version None)
Quarter: 2007Q1

REPORT INFORMATION
  Report Type: 
  Country: None (occurrence: None)
  Receive Date: 20070216
  Receipt Date: 20070208
  Transmission Date: 20070707
  Serious: Yes (Hospitalization, Other)
  Sender: FDA-Public Use
  Company Number: US-PFIZER INC-2006144737

PATIENT
  Sex: Male
  Weight: 82.6 kg

DRUGS (7)
  1. LIPITOR [Suspect]
     Indication: BLOOD CHOLESTEROL INCREASED
  2. CELEBREX [Suspect]
     Indication: OEDEMA PERIPHERAL
  3. NORVASC [Concomitant]
  4. METOPROLOL SUCCINATE [Concomitant]
  5. DIGOXIN [Concomitant]
  6. ACCUPRIL [Concomitant]
  7. LASIX [Concomitant]

REACTIONS (5)
  - CARDIAC FAILURE [None]
  - INTRACARDIAC THROMBUS [None]
  - MYOCARDIAL INFARCTION [None]
  - PROSTHESIS IMPLANTATION [None]
  - VISION BLURRED [None]
